FAERS Safety Report 12410585 (Version 1)
Quarter: 2016Q2

REPORT INFORMATION
  Report Type: Report from Study
  Country: US (occurrence: US)
  Receive Date: 20160527
  Receipt Date: 20160527
  Transmission Date: 20160815
  Serious: No
  Sender: FDA-Public Use
  Company Number: ALCN2013US007352

PATIENT

DRUGS (2)
  1. CIPRO HC [Suspect]
     Active Substance: CIPROFLOXACIN HYDROCHLORIDE\HYDROCORTISONE
     Indication: OTITIS MEDIA ACUTE
  2. CIPRO HC [Suspect]
     Active Substance: CIPROFLOXACIN HYDROCHLORIDE\HYDROCORTISONE
     Indication: OTITIS EXTERNA
     Dosage: UNK
     Route: 001

REACTIONS (1)
  - Ear discomfort [Unknown]
